FAERS Safety Report 7077354-3 (Version None)
Quarter: 2010Q4

REPORT INFORMATION
  Report Type: 
  Country: None (occurrence: None)
  Receive Date: 20101029
  Receipt Date: 20101029
  Transmission Date: 20110411
  Serious: Yes (Other)
  Sender: FDA-Public Use
  Company Number: None

PATIENT
  Age: 59 Year
  Sex: Female
  Weight: 58.9676 kg

DRUGS (1)
  1. CEFDINIR [Suspect]
     Indication: BACTERIAL INFECTION
     Dosage: 1 CAPSULE 12 HRS PO
     Route: 048
     Dates: start: 20101021, end: 20101024

REACTIONS (1)
  - DIARRHOEA [None]
